FAERS Safety Report 17828069 (Version 1)
Quarter: 2020Q2

REPORT INFORMATION
  Report Type: Spontaneous
  Country: US (occurrence: US)
  Receive Date: 20200527
  Receipt Date: 20200527
  Transmission Date: 20200714
  Serious: Yes (Hospitalization)
  Sender: FDA-Public Use
  Company Number: None

PATIENT
  Age: 34 Year
  Sex: Female
  Weight: 69.6 kg

DRUGS (1)
  1. FERRLECIT [Suspect]
     Active Substance: SODIUM FERRIC GLUCONATE COMPLEX
     Indication: ANAEMIA
     Route: 042

REACTIONS (5)
  - Pruritus [None]
  - Abdominal pain upper [None]
  - Tachycardia [None]
  - Flushing [None]
  - Hypoaesthesia [None]

NARRATIVE: CASE EVENT DATE: 20200522
